FAERS Safety Report 5508251-X (Version None)
Quarter: 2007Q4

REPORT INFORMATION
  Report Type: 
  Country: None (occurrence: None)
  Receive Date: 20071106
  Receipt Date: 20070416
  Transmission Date: 20080405
  Serious: No
  Sender: FDA-Public Use
  Company Number: A0645965A

PATIENT
  Age: 9 Year
  Sex: Male
  Weight: 27.3 kg

DRUGS (3)
  1. AMOXICILLIN [Suspect]
     Route: 048
  2. AUGMENTIN '125' [Suspect]
     Dosage: 1.5TSP TWICE PER DAY
     Route: 048
     Dates: start: 20070403
  3. NO CONCURRENT MEDICATION [Concomitant]

REACTIONS (3)
  - DRUG INEFFECTIVE [None]
  - SKIN DISCOLOURATION [None]
  - TOOTH DISCOLOURATION [None]
